FAERS Safety Report 6652461-5 (Version None)
Quarter: 2010Q1

REPORT INFORMATION
  Report Type: 
  Country: None (occurrence: None)
  Receive Date: 20100323
  Receipt Date: 20100310
  Transmission Date: 20100710
  Serious: Yes (Hospitalization)
  Sender: FDA-Public Use
  Company Number: 230048M10CAN

PATIENT
  Age: 35 Year
  Sex: Female

DRUGS (4)
  1. REBIF [Suspect]
     Indication: RELAPSING-REMITTING MULTIPLE SCLEROSIS
     Dosage: 22 MCG, 3 IN 1 WEEKS, SUBCUTANEOUS
     Route: 058
     Dates: start: 20090814
  2. MULTIVITAMIN [Concomitant]
  3. TYLENOL [Concomitant]
  4. IBUPROFEN [Concomitant]

REACTIONS (2)
  - GASTRIC ULCER [None]
  - HEADACHE [None]
